FAERS Safety Report 7523648-4 (Version None)
Quarter: 2011Q2

REPORT INFORMATION
  Report Type: 
  Country: None (occurrence: None)
  Receive Date: 20110603
  Receipt Date: 20110526
  Transmission Date: 20111010
  Serious: Yes (Other)
  Sender: FDA-Public Use
  Company Number: JP-ROCHE-777607

PATIENT
  Sex: Female
  Weight: 57 kg

DRUGS (11)
  1. ALFAROL [Concomitant]
     Route: 048
     Dates: start: 20090424
  2. AZULFIDINE [Concomitant]
     Route: 048
  3. TOCILIZUMAB [Suspect]
     Route: 041
     Dates: start: 20101022, end: 20101124
  4. BENET [Concomitant]
     Route: 048
     Dates: start: 20090424
  5. OLMESARTAN MEDOXOMIL [Concomitant]
     Route: 048
     Dates: start: 20101006
  6. TOCILIZUMAB [Suspect]
     Route: 041
     Dates: start: 20101222
  7. PREDNISOLONE [Concomitant]
     Route: 048
     Dates: start: 20101006
  8. LOXONIN [Concomitant]
     Route: 048
     Dates: start: 20090909
  9. BREDININ [Concomitant]
     Route: 048
  10. TOCILIZUMAB [Suspect]
     Indication: RHEUMATOID ARTHRITIS
     Route: 041
     Dates: start: 20101013
  11. RIMATIL [Concomitant]
     Route: 048

REACTIONS (2)
  - LOSS OF CONSCIOUSNESS [None]
  - PNEUMONIA [None]
